FAERS Safety Report 24282558 (Version 1)
Quarter: 2024Q3

REPORT INFORMATION
  Report Type: Report from Study
  Country: US (occurrence: US)
  Receive Date: 20240904
  Receipt Date: 20240904
  Transmission Date: 20241016
  Serious: Yes (Hospitalization)
  Sender: JOHNSON AND JOHNSON
  Company Number: US-JNJFOC-20240810171

PATIENT
  Age: 58 Year
  Sex: Female
  Weight: 53.1 kg

DRUGS (12)
  1. MACITENTAN [Suspect]
     Active Substance: MACITENTAN
     Indication: Pulmonary arterial hypertension
     Route: 048
     Dates: start: 20210225
  2. TREPROSTINIL [Suspect]
     Active Substance: TREPROSTINIL
     Indication: Pulmonary arterial hypertension
     Route: 055
  3. TREPROSTINIL [Suspect]
     Active Substance: TREPROSTINIL
     Indication: Sinus congestion
  4. VITAMIN C [Concomitant]
     Active Substance: ASCORBIC ACID
  5. SPIRONOLACTONE [Concomitant]
     Active Substance: SPIRONOLACTONE
  6. POTASSIUM CHLORIDE [Concomitant]
     Active Substance: POTASSIUM CHLORIDE
  7. VITAMIN B-1 [THIAMINE HYDROCHLORIDE] [Concomitant]
  8. ADEMPAS [Concomitant]
     Active Substance: RIOCIGUAT
  9. ELIQUIS [Concomitant]
     Active Substance: APIXABAN
  10. OXYGEN [Concomitant]
     Active Substance: OXYGEN
  11. ERGOCALCIFEROL [Concomitant]
     Active Substance: ERGOCALCIFEROL
  12. FUROSEMIDE [Concomitant]
     Active Substance: FUROSEMIDE

REACTIONS (5)
  - Sinusitis [Recovered/Resolved]
  - Nasal congestion [Not Recovered/Not Resolved]
  - Cough [Unknown]
  - Oxygen saturation decreased [Unknown]
  - Head discomfort [Unknown]

NARRATIVE: CASE EVENT DATE: 20230101
